FAERS Safety Report 21039539 (Version 4)
Quarter: 2022Q3

REPORT INFORMATION
  Report Type: Spontaneous
  Country: US (occurrence: US)
  Receive Date: 20220704
  Receipt Date: 20220713
  Transmission Date: 20221027
  Serious: Yes (Death, Life-Threatening, Hospitalization, Other)
  Sender: FDA-Public Use
  Company Number: US-NOVARTISPH-NVSC2022US151358

PATIENT
  Age: 60 Year
  Sex: Female
  Weight: 50 kg

DRUGS (8)
  1. CLOFAZIMINE [Suspect]
     Active Substance: CLOFAZIMINE
     Indication: Bronchiectasis
     Dosage: 50 MG, OTHER (3X/WEEK)
     Route: 048
     Dates: start: 20210615, end: 20220624
  2. CLOFAZIMINE [Suspect]
     Active Substance: CLOFAZIMINE
     Indication: Mycobacterium avium complex infection
  3. MORPHINE [Suspect]
     Active Substance: MORPHINE
     Indication: Product used for unknown indication
     Dosage: UNK
     Route: 065
  4. RIFABUTIN [Concomitant]
     Active Substance: RIFABUTIN
     Indication: Bronchiectasis
     Dosage: 150 MG, QD
     Route: 048
     Dates: start: 20201207
  5. ETHAMBUTOL [Concomitant]
     Active Substance: ETHAMBUTOL HYDROCHLORIDE
     Indication: Bronchiectasis
     Dosage: 1000 MG, QD
     Route: 048
     Dates: start: 20190917
  6. TEDIZOLID [Concomitant]
     Active Substance: TEDIZOLID
     Indication: Bronchiectasis
     Dosage: 200 MG, QD
     Route: 048
     Dates: start: 20211227
  7. MEROPENEM [Concomitant]
     Active Substance: MEROPENEM
     Indication: Bronchiectasis
     Dosage: 1 G, Q12H
     Route: 042
     Dates: start: 20220612
  8. CEFTAROLINE [Concomitant]
     Active Substance: CEFTAROLINE
     Indication: Bronchiectasis
     Dosage: 600 MG, Q12H
     Route: 042
     Dates: start: 20220615

REACTIONS (4)
  - Sepsis [Fatal]
  - Pleural infection [Unknown]
  - Hypoxia [Unknown]
  - Hypersensitivity [Unknown]

NARRATIVE: CASE EVENT DATE: 20220612
